FAERS Safety Report 21774946 (Version 1)
Quarter: 2022Q4

REPORT INFORMATION
  Report Type: Spontaneous
  Country: ES (occurrence: ES)
  Receive Date: 20221225
  Receipt Date: 20221225
  Transmission Date: 20230113
  Serious: Yes (Other)
  Sender: FDA-Public Use
  Company Number: ES-ABBVIE-4155976

PATIENT
  Age: 75 Year
  Sex: Male

DRUGS (3)
  1. ACETAMINOPHEN [Suspect]
     Active Substance: ACETAMINOPHEN
     Indication: Influenza
     Dosage: UNK
     Route: 065
     Dates: start: 20221120
  2. CARBIDOPA\LEVODOPA [Suspect]
     Active Substance: CARBIDOPA\LEVODOPA
     Indication: Parkinson^s disease
     Dosage: UNK (END DATE 2022)
     Dates: start: 20220127
  3. CARBIDOPA\LEVODOPA [Suspect]
     Active Substance: CARBIDOPA\LEVODOPA
     Dosage: UNK (INCREASED CONTINUOS DOSE)
     Dates: start: 20221102

REACTIONS (13)
  - Parkinson^s disease [Unknown]
  - Asthenia [Not Recovered/Not Resolved]
  - Clumsiness [Not Recovered/Not Resolved]
  - Fatigue [Not Recovered/Not Resolved]
  - Gait disturbance [Not Recovered/Not Resolved]
  - Influenza [Not Recovered/Not Resolved]
  - Mobility decreased [Unknown]
  - On and off phenomenon [Unknown]
  - Stoma site discharge [Not Recovered/Not Resolved]
  - Stoma site infection [Recovering/Resolving]
  - Device issue [Not Recovered/Not Resolved]
  - Therapeutic product effect delayed [Unknown]
  - Therapeutic product effect incomplete [Unknown]

NARRATIVE: CASE EVENT DATE: 20220101
